FAERS Safety Report 7443232-0 (Version None)
Quarter: 2011Q2

REPORT INFORMATION
  Report Type: 
  Country: None (occurrence: None)
  Receive Date: 20110428
  Receipt Date: 20110419
  Transmission Date: 20111010
  Serious: Yes (Disabling)
  Sender: FDA-Public Use
  Company Number: B0714898A

PATIENT
  Sex: Male
  Weight: 25 kg

DRUGS (16)
  1. FLUDARA [Suspect]
     Indication: CORD BLOOD TRANSPLANT THERAPY
     Dosage: 25MGM2 PER DAY
     Route: 042
     Dates: start: 20050922, end: 20050926
  2. METHOTREXATE [Concomitant]
     Indication: IMMUNOSUPPRESSION
     Dosage: 10MGM2 PER DAY
     Route: 065
     Dates: start: 20050930, end: 20051005
  3. ALKERAN [Suspect]
     Indication: CORD BLOOD TRANSPLANT THERAPY
     Dosage: 40MGM2 PER DAY
     Route: 042
     Dates: start: 20050923, end: 20050925
  4. TACROLIMUS HYDRATE [Concomitant]
     Indication: IMMUNOSUPPRESSION
     Dosage: .5MGK PER DAY
     Route: 065
     Dates: start: 20050928
  5. PREDONINE [Concomitant]
     Indication: IMMUNOSUPPRESSION
     Dosage: 1MGK PER DAY
     Route: 065
     Dates: start: 20051027
  6. KYTRIL [Concomitant]
     Dosage: 1.5MG PER DAY
     Route: 042
     Dates: end: 20050928
  7. CORTRIL [Concomitant]
     Dosage: 9MG PER DAY
     Route: 048
     Dates: end: 20051117
  8. ALLOID G [Concomitant]
     Dosage: 18ML PER DAY
     Route: 048
     Dates: end: 20050928
  9. ALLOPURINOL [Concomitant]
     Dosage: 18ML PER DAY
     Route: 002
     Dates: end: 20051019
  10. BAKTAR [Concomitant]
     Dosage: 2.5IUAX PER DAY
     Route: 048
  11. DIFLUCAN [Concomitant]
     Dosage: 125MG PER DAY
     Route: 048
  12. BACCIDAL [Concomitant]
     Dosage: 250MG PER DAY
     Route: 048
     Dates: end: 20051014
  13. URSO 250 [Concomitant]
     Dosage: 150MG PER DAY
     Route: 048
     Dates: end: 20051101
  14. VICCLOX [Concomitant]
     Dosage: 125MG PER DAY
     Route: 042
     Dates: end: 20051103
  15. BIOFERMIN R [Concomitant]
     Dosage: 2G PER DAY
     Route: 048
     Dates: end: 20051116
  16. ISODINE GARGLE [Concomitant]
     Route: 002

REACTIONS (4)
  - CYTOMEGALOVIRUS INFECTION [None]
  - PYREXIA [None]
  - C-REACTIVE PROTEIN INCREASED [None]
  - CYSTITIS [None]
